FAERS Safety Report 7081592-3 (Version None)
Quarter: 2010Q4

REPORT INFORMATION
  Report Type: 
  Country: None (occurrence: None)
  Receive Date: 20101025
  Receipt Date: 20101014
  Transmission Date: 20110411
  Serious: Yes (Disabling)
  Sender: FDA-Public Use
  Company Number: 638907

PATIENT
  Age: 62 Year
  Sex: Male

DRUGS (2)
  1. GENTAMICIN SULFATE [Suspect]
     Indication: DIVERTICULITIS
     Dosage: 450 MG MILLIGRAM(S), INTRAVENOUS
     Route: 042
     Dates: start: 20090624, end: 20090628
  2. ASPIRIN [Concomitant]

REACTIONS (5)
  - ACCOMMODATION DISORDER [None]
  - ATAXIA [None]
  - EYE MOVEMENT DISORDER [None]
  - IMPAIRED DRIVING ABILITY [None]
  - VESTIBULAR DISORDER [None]
